FAERS Safety Report 6681361-X (Version None)
Quarter: 2010Q2

REPORT INFORMATION
  Report Type: 
  Country: None (occurrence: None)
  Receive Date: 20100414
  Receipt Date: 20100413
  Transmission Date: 20101027
  Serious: Yes (Hospitalization)
  Sender: FDA-Public Use
  Company Number: A0816989A

PATIENT
  Age: 46 Year
  Sex: Female

DRUGS (7)
  1. ADVAIR DISKUS 100/50 [Suspect]
     Indication: CHRONIC OBSTRUCTIVE PULMONARY DISEASE
     Route: 055
     Dates: start: 20080601, end: 20100120
  2. SPIRIVA [Concomitant]
  3. ALBUTEROL [Concomitant]
  4. NORVASC [Concomitant]
  5. NITROGLYCERIN [Concomitant]
  6. INFLUENZA VACCINE [Concomitant]
     Dates: start: 20091001
  7. PNEUMONIA VACCINE [Concomitant]
     Dates: start: 20091001

REACTIONS (2)
  - CHEST PAIN [None]
  - RESPIRATORY DISORDER [None]
